FAERS Safety Report 7659057-7 (Version None)
Quarter: 2011Q3

REPORT INFORMATION
  Report Type: 
  Country: None (occurrence: None)
  Receive Date: 20110805
  Receipt Date: 20110804
  Transmission Date: 20111222
  Serious: Yes (Death)
  Sender: FDA-Public Use
  Company Number: JP-PFIZER INC-2011077566

PATIENT
  Age: 59 Year
  Sex: Female
  Weight: 53 kg

DRUGS (8)
  1. PREDNISOLONE [Concomitant]
     Dosage: UNK
     Route: 048
  2. ALENDRONATE SODIUM [Concomitant]
     Dosage: UNK
     Route: 048
  3. RABEPRAZOLE SODIUM [Concomitant]
     Dosage: UNK
     Route: 048
  4. WARFARIN [Concomitant]
     Indication: PULMONARY HYPERTENSION
     Dosage: UNK
     Route: 048
     Dates: end: 20100518
  5. URSO 250 [Concomitant]
     Dosage: UNK
     Route: 048
     Dates: end: 20100608
  6. PREDNISOLONE [Concomitant]
     Dosage: UNK
     Route: 048
  7. IMURAN [Concomitant]
     Dosage: UNK
     Route: 048
     Dates: end: 20100520
  8. SILDENAFIL CITRATE [Suspect]
     Indication: PULMONARY ARTERIAL HYPERTENSION
     Dosage: 30 MG DAILY
     Route: 048
     Dates: start: 20081024, end: 20100615

REACTIONS (1)
  - HEPATIC FAILURE [None]
